FAERS Safety Report 9683973 (Version 2)
Quarter: 2013Q4

REPORT INFORMATION
  Report Type: Spontaneous
  Country: US (occurrence: US)
  Receive Date: 20131112
  Receipt Date: 20131224
  Transmission Date: 20140711
  Serious: Yes (Other)
  Sender: FDA-Public Use
  Company Number: US-UCBSA-102738

PATIENT
  Age: 13 Year
  Sex: Female
  Weight: 47.6 kg

DRUGS (1)
  1. METHYLPHENIDATE ER [Suspect]
     Indication: ATTENTION DEFICIT/HYPERACTIVITY DISORDER
     Dosage: EXTENDED RELEASE TABLET, DRUG STRENGTH: 18 MG
     Route: 048
     Dates: start: 20131029, end: 20131029

REACTIONS (10)
  - Stevens-Johnson syndrome [Recovered/Resolved]
  - Urticaria [Recovered/Resolved]
  - Rash [Recovered/Resolved]
  - Swelling [Recovered/Resolved]
  - Local swelling [Recovered/Resolved]
  - Pharyngeal oedema [Recovered/Resolved]
  - Lip swelling [Recovered/Resolved]
  - Pruritus [Recovered/Resolved]
  - Erythema [Recovered/Resolved]
  - Skin discolouration [Recovered/Resolved]
